FAERS Safety Report 13148828 (Version 3)
Quarter: 2017Q1

REPORT INFORMATION
  Report Type: Report from Study
  Country: US (occurrence: US)
  Receive Date: 20170125
  Receipt Date: 20170303
  Transmission Date: 20170428
  Serious: Yes (Hospitalization, Other)
  Sender: FDA-Public Use
  Company Number: US-ROCHE-1876343

PATIENT
  Age: 85 Year
  Sex: Female
  Weight: 56.75 kg

DRUGS (12)
  1. ESBRIET [Suspect]
     Active Substance: PIRFENIDONE
     Indication: IDIOPATHIC PULMONARY FIBROSIS
     Dosage: 1 PILL THREE TIMES PER DAY
     Route: 048
     Dates: start: 20161122, end: 20161128
  2. ESBRIET [Suspect]
     Active Substance: PIRFENIDONE
     Dosage: 2 PILLS THREE TIMES PER DAY
     Route: 048
     Dates: start: 20161129, end: 20161205
  3. RANEXA [Concomitant]
     Active Substance: RANOLAZINE
     Dosage: 1000 MG 2 TIMES A DAY FOR 4 YEARS ;ONGOING: YES
     Route: 048
  4. ESBRIET [Suspect]
     Active Substance: PIRFENIDONE
     Dosage: 3 PILLS THREE TIMES PER DAY
     Route: 048
     Dates: start: 20161206, end: 20161220
  5. SIMVASTATIN. [Concomitant]
     Active Substance: SIMVASTATIN
     Indication: BLOOD CHOLESTEROL
     Dosage: 40 MG A DAY FOR A YEAR ;ONGOING: YES
     Route: 048
  6. BABY ASPIRIN [Concomitant]
     Active Substance: ASPIRIN
     Route: 048
  7. FUROSEMIDE. [Concomitant]
     Active Substance: FUROSEMIDE
     Indication: PERIPHERAL SWELLING
     Dosage: ONCE PER DAY AS NEEDED
     Route: 048
  8. LISINOPRIL. [Concomitant]
     Active Substance: LISINOPRIL
     Dosage: 10 MG A DAY FOR 2 YEARS ;ONGOING: NO
     Route: 048
     Dates: end: 201611
  9. LISINOPRIL. [Concomitant]
     Active Substance: LISINOPRIL
     Indication: BLOOD PRESSURE MEASUREMENT
     Dosage: 20 MG A DAY SINCE NOVEMBER 2016 ;ONGOING: YES
     Route: 048
     Dates: start: 201611
  10. VITAMIN E [Suspect]
     Active Substance: .ALPHA.-TOCOPHEROL
     Indication: PRODUCT USED FOR UNKNOWN INDICATION
     Route: 048
  11. COREG [Concomitant]
     Active Substance: CARVEDILOL
     Indication: BLOOD PRESSURE MEASUREMENT
     Dosage: 3.125 MG 2 TIMES A DAY FOR 2 YEARS ;ONGOING: YES
     Route: 048
  12. VITAMIN B12 [Concomitant]
     Active Substance: CYANOCOBALAMIN
     Dosage: STARTED 6 MONTHS OR SO PRIOR TO ESBRIET,ONGOING
     Route: 065

REACTIONS (34)
  - Fatigue [Recovering/Resolving]
  - Asthenia [Not Recovered/Not Resolved]
  - Nausea [Recovered/Resolved]
  - Rales [Not Recovered/Not Resolved]
  - Abdominal pain upper [Recovering/Resolving]
  - Epistaxis [Recovered/Resolved]
  - Nausea [Recovering/Resolving]
  - Feeding disorder [Unknown]
  - Dyspnoea [Not Recovered/Not Resolved]
  - Dysstasia [Recovered/Resolved]
  - Headache [Recovered/Resolved with Sequelae]
  - Contusion [Not Recovered/Not Resolved]
  - Weight decreased [Recovering/Resolving]
  - Vomiting [Recovering/Resolving]
  - Peripheral swelling [Recovered/Resolved with Sequelae]
  - Hypertension [Unknown]
  - Epistaxis [Recovered/Resolved]
  - Gastric disorder [Recovered/Resolved with Sequelae]
  - Decreased appetite [Recovering/Resolving]
  - Malaise [Recovered/Resolved]
  - Insomnia [Recovering/Resolving]
  - Weight decreased [Recovering/Resolving]
  - Blood pressure fluctuation [Recovered/Resolved with Sequelae]
  - Feeling abnormal [Not Recovered/Not Resolved]
  - Stress [Recovering/Resolving]
  - Asthenia [Recovering/Resolving]
  - Nausea [Unknown]
  - Hypoacusis [Not Recovered/Not Resolved]
  - Hypertension [Recovering/Resolving]
  - Vomiting [Recovered/Resolved]
  - Hypertension [Recovered/Resolved with Sequelae]
  - Weight fluctuation [Recovered/Resolved with Sequelae]
  - Headache [Recovered/Resolved]
  - Insomnia [Unknown]

NARRATIVE: CASE EVENT DATE: 201612
